FAERS Safety Report 24013629 (Version 1)
Quarter: 2024Q2

REPORT INFORMATION
  Report Type: Spontaneous
  Country: US (occurrence: US)
  Receive Date: 20240626
  Receipt Date: 20240626
  Transmission Date: 20240715
  Serious: Yes (Hospitalization, Other)
  Sender: FDA-Public Use
  Company Number: US-MLMSERVICE-20240507-PI052839-00152-1

PATIENT
  Age: 70 Year
  Sex: Male

DRUGS (3)
  1. FLUOROURACIL [Suspect]
     Active Substance: FLUOROURACIL
     Indication: Metastatic squamous cell carcinoma
     Dosage: 3000  MILLIGRAM/SQ. METER(750 MG/M2 FOR FOUR DOSES) CYCLE
     Route: 065
  2. CARBOPLATIN [Concomitant]
     Active Substance: CARBOPLATIN
     Indication: Squamous cell carcinoma of the tongue
     Dosage: 466 MILLIGRAM, CYCLE
     Route: 065
  3. DOCETAXEL [Concomitant]
     Active Substance: DOCETAXEL\DOCETAXEL ANHYDROUS
     Indication: Metastatic squamous cell carcinoma
     Dosage: 75 MILLIGRAM/SQ. METER, CYCLE
     Route: 065

REACTIONS (3)
  - Encephalopathy [Recovering/Resolving]
  - Febrile neutropenia [Recovering/Resolving]
  - Pneumatosis intestinalis [Recovering/Resolving]
